FAERS Safety Report 4996190-2 (Version None)
Quarter: 2006Q2

REPORT INFORMATION
  Report Type: 
  Country: None (occurrence: None)
  Receive Date: 20060504
  Receipt Date: 20060421
  Transmission Date: 20061013
  Serious: Yes (Death, Life-Threatening, Hospitalization, Other)
  Sender: FDA-Public Use
  Company Number: 2005166517

PATIENT
  Age: 55 Year
  Sex: Female

DRUGS (9)
  1. SUNITINIB MALEATE [Suspect]
     Indication: RENAL CELL CARCINOMA STAGE UNSPECIFIED
     Dosage: 50 MG (50 MG 1 IN 1 D) ORAL
     Route: 048
     Dates: start: 20051121, end: 20051204
  2. KEPPRA [Concomitant]
  3. TRILEPTAL [Concomitant]
  4. PROPANOLOL (PROPANOLOL) [Concomitant]
  5. HYPERICUM                      (HYPERICUM EXTRACT) [Concomitant]
  6. MEDROL ACETATE [Concomitant]
  7. NEXIUM [Concomitant]
  8. FLUCONAZOLE [Concomitant]
  9. METEOSPASMYL              (ALVERINE CITRATE, DL-METHIONINE) [Concomitant]

REACTIONS (12)
  - ALANINE AMINOTRANSFERASE INCREASED [None]
  - ASPARTATE AMINOTRANSFERASE INCREASED [None]
  - ASTHENIA [None]
  - CYTOLYTIC HEPATITIS [None]
  - DYSPNOEA [None]
  - HYPOTENSION [None]
  - HYPOTHERMIA [None]
  - MULTI-ORGAN FAILURE [None]
  - PERFORMANCE STATUS DECREASED [None]
  - REFUSAL OF TREATMENT BY PATIENT [None]
  - THERAPY NON-RESPONDER [None]
  - THROMBOCYTOPENIA [None]
